FAERS Safety Report 7902926-0 (Version None)
Quarter: 2011Q4

REPORT INFORMATION
  Report Type: 
  Country: None (occurrence: None)
  Receive Date: 20111109
  Receipt Date: 20111031
  Transmission Date: 20120403
  Serious: Yes (Hospitalization)
  Sender: FDA-Public Use
  Company Number: US-JNJFOC-20111003227

PATIENT
  Sex: Male
  Weight: 84.37 kg

DRUGS (6)
  1. RISPERDAL CONSTA [Suspect]
     Route: 030
     Dates: start: 20030101, end: 20110901
  2. RISPERDAL CONSTA [Suspect]
     Indication: BIPOLAR DISORDER
     Route: 030
     Dates: start: 20030101, end: 20110901
  3. RISPERDAL CONSTA [Suspect]
     Indication: SCHIZOPHRENIA
     Route: 030
     Dates: start: 20030101, end: 20030101
  4. RISPERDAL [Suspect]
     Indication: BIPOLAR DISORDER
     Route: 048
     Dates: start: 20110901, end: 20111028
  5. RISPERDAL CONSTA [Suspect]
     Route: 030
     Dates: start: 20030101, end: 20030101
  6. RISPERDAL [Suspect]
     Indication: SCHIZOPHRENIA
     Route: 048
     Dates: start: 20110901, end: 20111028

REACTIONS (9)
  - ABDOMINAL PAIN UPPER [None]
  - DRUG INEFFECTIVE [None]
  - CHEST PAIN [None]
  - ABNORMAL BEHAVIOUR [None]
  - INSOMNIA [None]
  - WEIGHT DECREASED [None]
  - CRYING [None]
  - EATING DISORDER [None]
  - DRUG EFFECT DECREASED [None]
